FAERS Safety Report 25923629 (Version 1)
Quarter: 2025Q4

REPORT INFORMATION
  Report Type: Spontaneous
  Country: US (occurrence: US)
  Receive Date: 20251015
  Receipt Date: 20251015
  Transmission Date: 20260118
  Serious: No
  Sender: GLAXOSMITHKLINE
  Company Number: US-GSK-US2025110372

PATIENT
  Sex: Female

DRUGS (1)
  1. VENTOLIN HFA [Suspect]
     Active Substance: ALBUTEROL SULFATE
     Indication: Dyspnoea
     Dosage: UNK 1 TO 2 PUFFS INHALED THREE TO FOUR TIMES A DAY

REACTIONS (4)
  - Dyspnoea [Unknown]
  - Panic reaction [Unknown]
  - Wrong technique in product usage process [Unknown]
  - Off label use [Unknown]
